FAERS Safety Report 5236250-4 (Version None)
Quarter: 2007Q1

REPORT INFORMATION
  Report Type: 
  Country: None (occurrence: None)
  Receive Date: 20070212
  Receipt Date: 20070130
  Transmission Date: 20070707
  Serious: Yes (Life-Threatening, Hospitalization)
  Sender: FDA-Public Use
  Company Number: IL-AMGEN-UK208921

PATIENT
  Age: 70 Year
  Sex: Female

DRUGS (11)
  1. NEUPOGEN [Suspect]
     Indication: CHEMOTHERAPY
  2. RITUXIMAB [Suspect]
  3. CYCLOPHOSPHAMIDE [Suspect]
  4. DOXORUBICIN HCL [Suspect]
  5. VINCRISTINE [Suspect]
  6. PREDNISONE [Suspect]
  7. CYCLOPHOSPHAMIDE [Concomitant]
  8. DOXORUBICIN HCL [Concomitant]
  9. VINCRISTINE [Concomitant]
  10. DEXAMETHASONE [Concomitant]
  11. METHOTREXATE [Concomitant]

REACTIONS (2)
  - DRUG INEFFECTIVE [None]
  - FEBRILE NEUTROPENIA [None]
